FAERS Safety Report 6100235-6 (Version None)
Quarter: 2009Q1

REPORT INFORMATION
  Report Type: 
  Country: None (occurrence: None)
  Receive Date: 20090302
  Receipt Date: 20090302
  Transmission Date: 20090719
  Serious: No
  Sender: FDA-Public Use
  Company Number: None

PATIENT
  Age: 49 Year
  Sex: Male
  Weight: 145.151 kg

DRUGS (1)
  1. ZICAM COLD REMEDY GEL SWABS  DOESN'T SAY ZICAM LLC [Suspect]
     Indication: NASOPHARYNGITIS
     Dosage: 1 SWAB EVERY 4 HOURS NASAL  (3 TIMES)
     Route: 045
     Dates: start: 20090217, end: 20090219

REACTIONS (3)
  - DYSGEUSIA [None]
  - HYPOGEUSIA [None]
  - HYPOSMIA [None]
